FAERS Safety Report 10284893 (Version 1)
Quarter: 2014Q3

REPORT INFORMATION
  Report Type: Report from Study
  Country: US (occurrence: US)
  Receive Date: 20140708
  Receipt Date: 20140708
  Transmission Date: 20150326
  Serious: Yes (Other)
  Sender: FDA-Public Use
  Company Number: US-ABBVIE-14P-163-1255182-00

PATIENT
  Age: 59 Year
  Sex: Male
  Weight: 95.79 kg

DRUGS (5)
  1. ZETIA [Concomitant]
     Active Substance: EZETIMIBE
     Indication: BLOOD CHOLESTEROL INCREASED
  2. ANDROGEL [Suspect]
     Active Substance: TESTOSTERONE
     Indication: BLOOD TESTOSTERONE DECREASED
     Route: 061
     Dates: start: 201306
  3. PANTOPRAZOLE [Concomitant]
     Active Substance: PANTOPRAZOLE SODIUM
     Indication: PRODUCT USED FOR UNKNOWN INDICATION
     Dates: start: 201405
  4. PEPTO-BISMOL [Concomitant]
     Active Substance: BISMUTH SUBSALICYLATE\CALCIUM CARBONATE
     Indication: GASTROOESOPHAGEAL REFLUX DISEASE
  5. ZOCOR [Concomitant]
     Active Substance: SIMVASTATIN
     Indication: PRODUCT USED FOR UNKNOWN INDICATION

REACTIONS (9)
  - Lung infection [Unknown]
  - Weight decreased [Not Recovered/Not Resolved]
  - Tuberculosis [Not Recovered/Not Resolved]
  - Drug administered at inappropriate site [Unknown]
  - Dysphagia [Recovered/Resolved]
  - Cough [Unknown]
  - Mycobacterium test positive [Unknown]
  - Pyrexia [Unknown]
  - Oesophageal stenosis [Recovered/Resolved]

NARRATIVE: CASE EVENT DATE: 201401
